FAERS Safety Report 15189984 (Version 1)
Quarter: 2018Q3

REPORT INFORMATION
  Report Type: Spontaneous
  Country: US (occurrence: US)
  Receive Date: 20180724
  Receipt Date: 20180724
  Transmission Date: 20181010
  Serious: Yes (Other)
  Sender: FDA-Public Use
  Company Number: US-PFIZER INC-2018295539

PATIENT
  Age: 52 Year
  Sex: Male

DRUGS (1)
  1. GABAPENTIN. [Suspect]
     Active Substance: GABAPENTIN
     Dosage: 800 MG, DAILY

REACTIONS (4)
  - Blindness [Unknown]
  - Halo vision [Unknown]
  - Malaise [Unknown]
  - Visual impairment [Unknown]
